FAERS Safety Report 7607588-8 (Version None)
Quarter: 2011Q3

REPORT INFORMATION
  Report Type: 
  Country: None (occurrence: None)
  Receive Date: 20110713
  Receipt Date: 20110706
  Transmission Date: 20111222
  Serious: Yes (Death, Other)
  Sender: FDA-Public Use
  Company Number: PHHY2009IT40960

PATIENT
  Sex: Female

DRUGS (4)
  1. GABAPENTIN [Concomitant]
  2. PREDNISONE [Concomitant]
     Dosage: 25 MG, UNK
     Route: 048
  3. ZOMETA [Suspect]
     Indication: METASTASES TO BREAST
     Dosage: 4 MG, MONTHLY
     Route: 042
     Dates: start: 20040601, end: 20060228
  4. TAMOXIFEN CITRATE [Concomitant]

REACTIONS (2)
  - DEATH [None]
  - OSTEONECROSIS OF JAW [None]
